FAERS Safety Report 7508044-8 (Version None)
Quarter: 2011Q2

REPORT INFORMATION
  Report Type: 
  Country: None (occurrence: None)
  Receive Date: 20110519
  Receipt Date: 20110505
  Transmission Date: 20111010
  Serious: Yes (Hospitalization)
  Sender: FDA-Public Use
  Company Number: USA/USA/11/0018306

PATIENT
  Age: 45 Year
  Sex: Female

DRUGS (9)
  1. ALENDRONATE SODIUM [Concomitant]
  2. INSULIN (INSULIN) [Concomitant]
  3. ATENOLOL [Concomitant]
  4. IPRATROPIUM-ALBUTEROL (SALBUTAMOL W/IPRATROPIUM) [Concomitant]
  5. METHIMAZOLE [Suspect]
     Indication: HYPERTHYROIDISM
     Dosage: 10 MG, 2 IN 1 D
  6. PANTOPRAZOLE [Concomitant]
  7. FEXOFENADINE HYDROCHLORIDE [Concomitant]
  8. LEVETIRACETAM [Suspect]
     Indication: PARTIAL SEIZURES
     Dosage: 500 MG, 2 IN 1 D)
  9. PROPOXYPHENE-ACETAMINOPHEN (APOREX) [Concomitant]

REACTIONS (3)
  - SEPTIC SHOCK [None]
  - RESPIRATORY FAILURE [None]
  - ACUTE GENERALISED EXANTHEMATOUS PUSTULOSIS [None]
